FAERS Safety Report 4318483-4 (Version None)
Quarter: 2004Q1

REPORT INFORMATION
  Report Type: 
  Country: None (occurrence: None)
  Receive Date: 20040316
  Receipt Date: 20040316
  Transmission Date: 20041129
  Serious: Yes (Other)
  Sender: FDA-Public Use
  Company Number: None

PATIENT
  Age: 53 Year
  Sex: Female
  Weight: 63.5036 kg

DRUGS (1)
  1. FOSAMAX [Suspect]
     Indication: OSTEOPENIA
     Dosage: 35 MG. 1 WEEK ORAL
     Route: 048
     Dates: start: 20020401

REACTIONS (2)
  - HYPOGEUSIA [None]
  - PAROSMIA [None]
